FAERS Safety Report 8737773 (Version 2)
Quarter: 2012Q4

REPORT INFORMATION
  Report Type: 
  Country: JP (occurrence: JP)
  Receive Date: 20120822
  Receipt Date: 20120926
  Transmission Date: 20130627
  Serious: Yes (Other)
  Sender: FDA-Public Use
  Company Number: JP-009507513-1208JPN003957

PATIENT
  Age: 46 Year
  Sex: Male
  Weight: 62 kg

DRUGS (19)
  1. PEGINTRON [Suspect]
     Indication: HEPATITIS C
     Dosage: 100mcg/kg/week
     Route: 058
     Dates: start: 20120523, end: 20120627
  2. REBETOL [Suspect]
     Indication: HEPATITIS C
     Dosage: 800 mg, qd
     Route: 048
     Dates: start: 20120523, end: 20120612
  3. REBETOL [Suspect]
     Dosage: 600 mg, qd
     Route: 048
     Dates: start: 20120613, end: 20120702
  4. TELAVIC [Suspect]
     Indication: HEPATITIS C
     Dosage: 1500 mg, qd
     Route: 048
     Dates: start: 20120523, end: 20120525
  5. TELAVIC [Suspect]
     Dosage: 1500 mg, qd
     Route: 048
     Dates: start: 20120528, end: 20120702
  6. ALESION [Suspect]
     Indication: PROPHYLAXIS
     Dosage: 20 mg, qd
     Route: 048
     Dates: start: 20120523
  7. ZYLORIC [Suspect]
     Dosage: 1 DF, qd
     Route: 048
     Dates: start: 20120613, end: 20120702
  8. PREDONINE [Suspect]
     Dosage: 20 mg, qd
     Route: 048
     Dates: start: 20120613
  9. PREDONINE [Suspect]
     Dosage: 15 mg, qd
     Route: 048
     Dates: start: 20120618
  10. PREDONINE [Suspect]
     Dosage: 10 mg, qd
     Route: 048
     Dates: start: 20120620
  11. PREDONINE [Suspect]
     Dosage: 5 mg, qd
     Route: 048
     Dates: start: 20120627, end: 20120704
  12. VITAMEDIN [Concomitant]
     Route: 048
  13. FOLIAMIN [Concomitant]
     Route: 048
  14. VEGETAMIN B [Concomitant]
     Route: 048
  15. FLUNITRAZEPAM [Concomitant]
     Route: 048
  16. VOLTAREN [Concomitant]
     Indication: PYREXIA
     Dosage: UNK UNK, prn
     Route: 048
  17. SELBEX [Concomitant]
     Dosage: UNK, prn
     Route: 048
  18. MIYA-BM [Concomitant]
     Route: 048
  19. PROHEPARUM [Concomitant]
     Route: 048

REACTIONS (2)
  - Erythema [Recovered/Resolved]
  - Pancreatitis acute [Recovering/Resolving]
